FAERS Safety Report 14431682 (Version 2)
Quarter: 2018Q1

REPORT INFORMATION
  Report Type: Report from Study
  Country: US (occurrence: US)
  Receive Date: 20180124
  Receipt Date: 20180201
  Transmission Date: 20180509
  Serious: Yes (Other)
  Sender: FDA-Public Use
  Company Number: US-ROCHE-2057298

PATIENT
  Sex: Female

DRUGS (3)
  1. LUCENTIS [Suspect]
     Active Substance: RANIBIZUMAB
     Indication: CHOROIDAL NEOVASCULARISATION
  2. LUCENTIS [Suspect]
     Active Substance: RANIBIZUMAB
     Indication: CHOROIDAL NEOVASCULARISATION
  3. LUCENTIS [Suspect]
     Active Substance: RANIBIZUMAB
     Indication: NEOVASCULAR AGE-RELATED MACULAR DEGENERATION
     Route: 065
     Dates: start: 20060201, end: 20150708

REACTIONS (8)
  - Blindness [Unknown]
  - Disturbance in attention [Unknown]
  - Malaise [Unknown]
  - Visual impairment [Not Recovered/Not Resolved]
  - Dysgraphia [Unknown]
  - Blindness [Not Recovered/Not Resolved]
  - Hypoacusis [Unknown]
  - Retinal drusen [Unknown]
